FAERS Safety Report 12192616 (Version 5)
Quarter: 2016Q3

REPORT INFORMATION
  Report Type: Spontaneous
  Country: US (occurrence: US)
  Receive Date: 20160318
  Receipt Date: 20160927
  Transmission Date: 20161109
  Serious: No
  Sender: FDA-Public Use
  Company Number: US-ASTRAZENECA-2016SE21971

PATIENT
  Age: 855 Month
  Sex: Female
  Weight: 98.9 kg

DRUGS (5)
  1. BLOOD PRESSURE PILL [Concomitant]
     Active Substance: UNSPECIFIED INGREDIENT
     Indication: HYPERTENSION
     Dosage: DAILY
     Route: 048
  2. HYDROCODONE [Concomitant]
     Active Substance: HYDROCODONE
     Indication: ARTHRALGIA
     Dosage: 10 MG; USUALLY 4 TIMES A DAY, SOMETIMES 5 TIMES A DAY
     Route: 048
  3. BYDUREON [Suspect]
     Active Substance: EXENATIDE
     Indication: TYPE 2 DIABETES MELLITUS
     Route: 058
     Dates: start: 20160219
  4. BYDUREON [Suspect]
     Active Substance: EXENATIDE
     Indication: TYPE 2 DIABETES MELLITUS
     Route: 058
     Dates: start: 201603
  5. ASPIRIN. [Concomitant]
     Active Substance: ASPIRIN
     Indication: CARDIAC DISORDER

REACTIONS (7)
  - Arthritis [Unknown]
  - Diarrhoea [Unknown]
  - Memory impairment [Unknown]
  - Circumstance or information capable of leading to medication error [Unknown]
  - Eructation [Unknown]
  - Blood glucose increased [Unknown]
  - Device leakage [Unknown]

NARRATIVE: CASE EVENT DATE: 201602
